FAERS Safety Report 7777749-6 (Version None)
Quarter: 2011Q3

REPORT INFORMATION
  Report Type: 
  Country: None (occurrence: None)
  Receive Date: 20110926
  Receipt Date: 20110916
  Transmission Date: 20111222
  Serious: Yes (Hospitalization)
  Sender: FDA-Public Use
  Company Number: US-BIOGENIDEC-2011BI011127

PATIENT
  Age: 43 Year
  Sex: Female

DRUGS (2)
  1. AVONEX [Suspect]
     Indication: MULTIPLE SCLEROSIS
     Route: 030
     Dates: start: 20100323
  2. AVONEX [Suspect]
     Route: 030

REACTIONS (6)
  - MUSCULOSKELETAL STIFFNESS [None]
  - FALL [None]
  - HUMERUS FRACTURE [None]
  - PAIN IN EXTREMITY [None]
  - PELVIC FRACTURE [None]
  - PROCEDURAL PAIN [None]
